FAERS Safety Report 4463920-8 (Version None)
Quarter: 2004Q4

REPORT INFORMATION
  Report Type: 
  Country: None (occurrence: None)
  Receive Date: 20041001
  Receipt Date: 20040603
  Transmission Date: 20050328
  Serious: Yes (Hospitalization)
  Sender: FDA-Public Use
  Company Number: US-AMGEN-US079053

PATIENT
  Age: 80 Year
  Sex: Male

DRUGS (10)
  1. EPOGEN [Suspect]
     Indication: MYELODYSPLASTIC SYNDROME
     Dates: start: 20010101
  2. IMDUR [Concomitant]
  3. DIGOXIN [Concomitant]
  4. IRON [Concomitant]
  5. TRIAMCINOLONE [Concomitant]
  6. THALIDOMIDE [Concomitant]
  7. PRINIVIL [Concomitant]
  8. COUMADIN [Concomitant]
  9. LASIX [Concomitant]
  10. DALMANE [Concomitant]

REACTIONS (6)
  - CELLULITIS [None]
  - CLOSTRIDIUM COLITIS [None]
  - DEHYDRATION [None]
  - ILEUS [None]
  - OEDEMA [None]
  - RASH [None]
